FAERS Safety Report 4571251-0 (Version None)
Quarter: 2005Q1

REPORT INFORMATION
  Report Type: 
  Country: None (occurrence: None)
  Receive Date: 20050202
  Receipt Date: 20050114
  Transmission Date: 20050727
  Serious: Yes (Life-Threatening, Other)
  Sender: FDA-Public Use
  Company Number: USA050188440

PATIENT
  Age: 61 Year
  Sex: Female

DRUGS (2)
  1. XIGRIS [Suspect]
     Indication: NOSOCOMIAL INFECTION
     Dosage: 24 UG/KG/HR
  2. XIGRIS [Suspect]
     Indication: SEPSIS
     Dosage: 24 UG/KG/HR

REACTIONS (1)
  - ARTERIOSPASM CORONARY [None]
